FAERS Safety Report 19147459 (Version 1)
Quarter: 2021Q2

REPORT INFORMATION
  Report Type: Spontaneous
  Country: US (occurrence: US)
  Receive Date: 20210416
  Receipt Date: 20210416
  Transmission Date: 20210717
  Serious: No
  Sender: FDA-Public Use
  Company Number: US-SA-2021SA112782

PATIENT
  Age: 62 Year
  Sex: Female

DRUGS (2)
  1. LANTUS SOLOSTAR [Suspect]
     Active Substance: INSULIN GLARGINE
     Indication: TYPE 2 DIABETES MELLITUS
     Dosage: 32 IU
  2. LANTUS SOLOSTAR [Suspect]
     Active Substance: INSULIN GLARGINE
     Dosage: (22 UNITS AM + 20 UNITS PM), Q12H

REACTIONS (4)
  - Feeling abnormal [Unknown]
  - Inappropriate schedule of product administration [Unknown]
  - Device breakage [Unknown]
  - Drug dose omission by device [Unknown]
